FAERS Safety Report 4271985-1 (Version None)
Quarter: 2004Q1

REPORT INFORMATION
  Report Type: 
  Country: None (occurrence: None)
  Receive Date: 20040115
  Receipt Date: 20040113
  Transmission Date: 20041129
  Serious: Yes (Death, Life-Threatening)
  Sender: FDA-Public Use
  Company Number: JP-BRISTOL-MYERS SQUIBB COMPANY-12476222

PATIENT
  Age: 1 Year
  Sex: Male

DRUGS (3)
  1. CARBOPLATIN [Suspect]
     Indication: AUTOLOGOUS BONE MARROW TRANSPLANTATION THERAPY
     Route: 042
     Dates: start: 20030114, end: 20030117
  2. ETOPOSIDE [Suspect]
     Indication: AUTOLOGOUS BONE MARROW TRANSPLANTATION THERAPY
     Route: 042
     Dates: start: 20030114, end: 20030117
  3. MELPHALAN [Concomitant]
     Indication: AUTOLOGOUS BONE MARROW TRANSPLANTATION THERAPY
     Route: 042
     Dates: start: 20030117, end: 20030118

REACTIONS (4)
  - ABDOMINAL DISTENSION [None]
  - ASCITES [None]
  - SEPSIS [None]
  - VENOOCCLUSIVE LIVER DISEASE [None]
